FAERS Safety Report 23281694 (Version 1)
Quarter: 2023Q4

REPORT INFORMATION
  Report Type: Other
  Country: GB (occurrence: None)
  Receive Date: 20231211
  Receipt Date: 20231211
  Transmission Date: 20240110
  Serious: Yes (Other)
  Sender: FDA-Public Use
  Company Number: GB-ROCHE-3470280

PATIENT
  Age: 64 Year
  Sex: Male

DRUGS (4)
  1. PRALSETINIB [Suspect]
     Active Substance: PRALSETINIB
     Indication: Non-small cell lung cancer
     Route: 065
  2. PRALSETINIB [Suspect]
     Active Substance: PRALSETINIB
     Route: 065
     Dates: start: 20201217
  3. PRALSETINIB [Suspect]
     Active Substance: PRALSETINIB
     Route: 065
  4. SELPERCATINIB [Concomitant]
     Active Substance: SELPERCATINIB

REACTIONS (4)
  - Pneumonitis [Recovering/Resolving]
  - Metastases to meninges [Unknown]
  - Metastases to central nervous system [Unknown]
  - Metastases to lung [Unknown]

NARRATIVE: CASE EVENT DATE: 20211013
